FAERS Safety Report 13783311 (Version 1)
Quarter: 2017Q3

REPORT INFORMATION
  Report Type: Spontaneous
  Country: US (occurrence: US)
  Receive Date: 20170724
  Receipt Date: 20170724
  Transmission Date: 20171127
  Serious: No
  Sender: FDA-Public Use
  Company Number: US-PFIZER INC-2017311575

PATIENT
  Age: 47 Year
  Sex: Female

DRUGS (3)
  1. METHOTREXATE SODIUM. [Suspect]
     Active Substance: METHOTREXATE SODIUM
     Dosage: 0.5 ML, WEEKLY
  2. GABAPENTIN. [Suspect]
     Active Substance: GABAPENTIN
     Dosage: 100 MG, 2X/DAY
     Route: 048
  3. GABAPENTIN. [Suspect]
     Active Substance: GABAPENTIN
     Dosage: 300 MG, 1X/DAY
     Route: 048

REACTIONS (22)
  - Nausea [Unknown]
  - Photosensitivity reaction [Unknown]
  - Sleep disorder [Unknown]
  - Insomnia [Unknown]
  - Joint stiffness [Unknown]
  - Fatigue [Unknown]
  - Nocturia [Unknown]
  - Depression [Unknown]
  - Tenderness [Unknown]
  - Dry mouth [Unknown]
  - Arthralgia [Unknown]
  - Fibromyalgia [Unknown]
  - Amnesia [Unknown]
  - Restless legs syndrome [Unknown]
  - Dry eye [Unknown]
  - Nasal disorder [Unknown]
  - Feeling abnormal [Unknown]
  - Weight increased [Unknown]
  - Pain in extremity [Unknown]
  - Musculoskeletal stiffness [Unknown]
  - Joint swelling [Unknown]
  - Increased tendency to bruise [Unknown]
